FAERS Safety Report 6455883-0 (Version None)
Quarter: 2009Q4

REPORT INFORMATION
  Report Type: 
  Country: None (occurrence: None)
  Receive Date: 20091125
  Receipt Date: 20091120
  Transmission Date: 20100525
  Serious: Yes (Congenital Anomaly)
  Sender: FDA-Public Use
  Company Number: US-BIOGENIDEC-2009BI000142

PATIENT
  Age: 0 Day
  Sex: Male
  Weight: 2 kg

DRUGS (1)
  1. AVONEX [Suspect]
     Indication: DRUG EXPOSURE DURING PREGNANCY
     Route: 064
     Dates: start: 20071215, end: 20080111

REACTIONS (3)
  - CONGENITAL AORTIC ANOMALY [None]
  - CONGENITAL CARDIOVASCULAR ANOMALY [None]
  - CONGENITAL OESOPHAGEAL ANOMALY [None]
